FAERS Safety Report 5524348-2 (Version None)
Quarter: 2007Q4

REPORT INFORMATION
  Report Type: 
  Country: None (occurrence: None)
  Receive Date: 20071121
  Receipt Date: 20071113
  Transmission Date: 20080405
  Serious: Yes (Hospitalization, Other)
  Sender: FDA-Public Use
  Company Number: FR-PFIZER INC-2007095826

PATIENT
  Age: 64 Year
  Sex: Male

DRUGS (4)
  1. CELEBREX [Suspect]
  2. ALL OTHER THERAPEUTIC PRODUCTS [Concomitant]
     Dates: start: 19930101, end: 20030710
  3. ELISOR [Concomitant]
     Dates: start: 20010801, end: 20030710
  4. ZOLOFT [Concomitant]
     Dates: start: 20030501, end: 20030710

REACTIONS (1)
  - ACUTE GENERALISED EXANTHEMATOUS PUSTULOSIS [None]
